FAERS Safety Report 7733952-2 (Version None)
Quarter: 2011Q3

REPORT INFORMATION
  Report Type: 
  Country: None (occurrence: None)
  Receive Date: 20110907
  Receipt Date: 20110824
  Transmission Date: 20111222
  Serious: Yes (Hospitalization)
  Sender: FDA-Public Use
  Company Number: US-CELGENEUS-163-21880-11061117

PATIENT
  Sex: Female
  Weight: 67 kg

DRUGS (2)
  1. REVLIMID [Suspect]
     Dosage: 15 MILLIGRAM
     Route: 048
     Dates: start: 20110105
  2. REVLIMID [Suspect]
     Route: 048

REACTIONS (2)
  - ANXIETY [None]
  - DYSPNOEA [None]
